FAERS Safety Report 8278482-7 (Version None)
Quarter: 2012Q2

REPORT INFORMATION
  Report Type: 
  Country: None (occurrence: None)
  Receive Date: 20120412
  Receipt Date: 20110405
  Transmission Date: 20120825
  Serious: No
  Sender: FDA-Public Use
  Company Number: US-ASTRAZENECA-2011SE19124

PATIENT
  Sex: Female

DRUGS (3)
  1. NAPROXEN [Suspect]
     Route: 065
  2. NEXIUM [Suspect]
     Route: 048
  3. UNSPECIFIED [Concomitant]

REACTIONS (1)
  - GASTROINTESTINAL DISORDER [None]
